FAERS Safety Report 6687698-2 (Version None)
Quarter: 2010Q2

REPORT INFORMATION
  Report Type: 
  Country: None (occurrence: None)
  Receive Date: 20100419
  Receipt Date: 20100415
  Transmission Date: 20101027
  Serious: Yes (Other)
  Sender: FDA-Public Use
  Company Number: US-BRISTOL-MYERS SQUIBB COMPANY-15065345

PATIENT
  Age: 56 Year
  Sex: Female
  Weight: 113 kg

DRUGS (6)
  1. KENALOG [Suspect]
     Indication: BACK PAIN
     Dosage: EPIDURAL INJECTION  ALSO RECEIVED ON 05APR2010 KENALOG 80MG INJ INTO THE KNEE
     Route: 008
     Dates: start: 20090518
  2. KENALOG [Suspect]
     Indication: ARTHRITIS
     Dosage: EPIDURAL INJECTION  ALSO RECEIVED ON 05APR2010 KENALOG 80MG INJ INTO THE KNEE
     Route: 008
     Dates: start: 20090518
  3. KENALOG [Suspect]
     Indication: MENISCUS LESION
     Dosage: EPIDURAL INJECTION  ALSO RECEIVED ON 05APR2010 KENALOG 80MG INJ INTO THE KNEE
     Route: 008
     Dates: start: 20090518
  4. BENICAR [Concomitant]
  5. ASPIRIN [Concomitant]
  6. SIMVASTATIN [Concomitant]

REACTIONS (2)
  - BLOOD GLUCOSE INCREASED [None]
  - VAGINAL HAEMORRHAGE [None]
